FAERS Safety Report 23454815 (Version 5)
Quarter: 2024Q4

REPORT INFORMATION
  Report Type: Spontaneous
  Country: US (occurrence: US)
  Receive Date: 20240130
  Receipt Date: 20241220
  Transmission Date: 20250115
  Serious: Yes (Other)
  Sender: RANBAXY
  Company Number: US-SUN PHARMACEUTICAL INDUSTRIES LTD-2024R1-429007

PATIENT
  Sex: Female

DRUGS (4)
  1. ODOMZO [Suspect]
     Active Substance: SONIDEGIB
     Indication: Basal cell carcinoma
     Dosage: 200 MILLIGRAM, QD
     Route: 048
     Dates: start: 202207, end: 202209
  2. ODOMZO [Suspect]
     Active Substance: SONIDEGIB
     Dosage: 200 MILLIGRAM, QD
     Route: 048
     Dates: start: 202304
  3. ODOMZO [Suspect]
     Active Substance: SONIDEGIB
     Dosage: UNK (TAKE 1 CAPSULE BY MOUTH ONCE DAILY AS DIRECTED)
     Route: 048
     Dates: start: 20231220
  4. ODOMZO [Suspect]
     Active Substance: SONIDEGIB
     Dosage: 1 DOSAGE FORM, QD DAILY
     Route: 048
     Dates: start: 20231220

REACTIONS (14)
  - Disease recurrence [Unknown]
  - Condition aggravated [Unknown]
  - Neuropathy peripheral [Unknown]
  - Drug ineffective [Unknown]
  - COVID-19 [Unknown]
  - Extra dose administered [Unknown]
  - Alopecia [Unknown]
  - Taste disorder [Unknown]
  - Fatigue [Unknown]
  - Nausea [Unknown]
  - Arthralgia [Unknown]
  - Disturbance in attention [Unknown]
  - Hypoaesthesia [Unknown]
  - Paraesthesia [Unknown]
